FAERS Safety Report 16025155 (Version 1)
Quarter: 2019Q1

REPORT INFORMATION
  Report Type: Spontaneous
  Country: US (occurrence: US)
  Receive Date: 20190301
  Receipt Date: 20190301
  Transmission Date: 20190418
  Serious: No
  Sender: FDA-Public Use
  Company Number: US-SA-2019SA057235

PATIENT
  Age: 63 Year
  Sex: Male
  Weight: 140.59 kg

DRUGS (1)
  1. PRALUENT [Suspect]
     Active Substance: ALIROCUMAB
     Dosage: 75 MG, QOW
     Route: 058
     Dates: start: 20190102

REACTIONS (1)
  - Muscle spasms [Recovered/Resolved]

NARRATIVE: CASE EVENT DATE: 201901
